FAERS Safety Report 16700506 (Version 1)
Quarter: 2019Q3

REPORT INFORMATION
  Report Type: Spontaneous
  Country: JP (occurrence: JP)
  Receive Date: 20190814
  Receipt Date: 20190814
  Transmission Date: 20191004
  Serious: Yes (Other)
  Sender: FDA-Public Use
  Company Number: JP-ASTELLAS-2019JP010748

PATIENT
  Age: 7 Decade
  Sex: Female

DRUGS (2)
  1. PROGRAF [Interacting]
     Active Substance: TACROLIMUS\TACROLIMUS ANHYDROUS
     Dosage: 8 MG/DAY, UNKNOWN FREQ.
     Route: 048
  2. PROGRAF [Suspect]
     Active Substance: TACROLIMUS\TACROLIMUS ANHYDROUS
     Indication: BONE MARROW TRANSPLANT
     Dosage: 3 MG/DAY, UNKNOWN FREQ.
     Route: 048
     Dates: start: 20190422

REACTIONS (2)
  - Graft versus host disease in skin [Recovered/Resolved]
  - Food interaction [Recovered/Resolved]
